FAERS Safety Report 15756778 (Version 1)
Quarter: 2018Q4

REPORT INFORMATION
  Report Type: Spontaneous
  Country: US (occurrence: US)
  Receive Date: 20181224
  Receipt Date: 20181224
  Transmission Date: 20190205
  Serious: No
  Sender: FDA-Public Use
  Company Number: US-GLAXOSMITHKLINE-US2018230200

PATIENT
  Age: 59 Year
  Sex: Female

DRUGS (1)
  1. NICORETTE FRESH MINT [Suspect]
     Active Substance: NICOTINE
     Indication: DRUG WITHDRAWAL MAINTENANCE THERAPY
     Dosage: I CHEW ABOUT 9 1MG PIECES PER A DAY.

REACTIONS (1)
  - Wrong technique in product usage process [Unknown]
